FAERS Safety Report 9385129 (Version 1)
Quarter: 2013Q3

REPORT INFORMATION
  Report Type: Spontaneous
  Country: GB (occurrence: GB)
  Receive Date: 20130705
  Receipt Date: 20130705
  Transmission Date: 20140515
  Serious: Yes (Other)
  Sender: FDA-Public Use
  Company Number: GB-GLAXOSMITHKLINE-B0897880A

PATIENT
  Age: 55 Year
  Sex: Male

DRUGS (10)
  1. ARZERRA [Suspect]
     Indication: PRODUCT USED FOR UNKNOWN INDICATION
     Route: 065
     Dates: start: 20130604, end: 20130604
  2. METHYLPREDNISOLONE [Concomitant]
     Route: 042
     Dates: start: 20130604, end: 20130604
  3. CHLORPHENIRAMINE [Concomitant]
     Route: 042
     Dates: start: 20130604, end: 20130604
  4. NEORAL [Concomitant]
     Indication: AUTOIMMUNE HAEMOLYTIC ANAEMIA
     Dosage: 100MG TWICE PER DAY
     Route: 048
     Dates: start: 201301
  5. FOLIC ACID [Concomitant]
     Indication: AUTOIMMUNE HAEMOLYTIC ANAEMIA
     Dosage: 5MG PER DAY
     Route: 048
  6. ALLOPURINOL [Concomitant]
     Indication: TUMOUR LYSIS SYNDROME
     Dosage: 300MG PER DAY
     Route: 048
     Dates: start: 20130604
  7. LANSOPRAZOLE [Concomitant]
     Dosage: 30MG PER DAY
     Route: 048
  8. CO-TRIMOXAZOLE [Concomitant]
     Indication: PROPHYLAXIS
     Dosage: 960MG THREE TIMES PER WEEK
     Route: 048
  9. PREDNISOLONE [Concomitant]
     Indication: AUTOIMMUNE HAEMOLYTIC ANAEMIA
     Dosage: 10MG PER DAY
     Dates: start: 201301
  10. ALENDRONIC ACID [Concomitant]
     Dosage: 70MG WEEKLY

REACTIONS (2)
  - Rash maculo-papular [Recovered/Resolved]
  - Paraesthesia [Recovered/Resolved]
